FAERS Safety Report 7200561-3 (Version None)
Quarter: 2010Q4

REPORT INFORMATION
  Report Type: 
  Country: None (occurrence: None)
  Receive Date: 20101206
  Receipt Date: 20101116
  Transmission Date: 20110411
  Serious: Yes (Other)
  Sender: FDA-Public Use
  Company Number: OMX-2010-00049

PATIENT
  Age: 35 Year
  Sex: Female

DRUGS (2)
  1. EVICEL [Suspect]
     Indication: PTERYGIUM OPERATION
     Dosage: 2 ML
  2. APPLICATOR [Concomitant]

REACTIONS (4)
  - GRAFT COMPLICATION [None]
  - GRAFT LOSS [None]
  - INFLAMMATION [None]
  - SURGICAL PROCEDURE REPEATED [None]
